FAERS Safety Report 9827184 (Version 1)
Quarter: 2014Q1

REPORT INFORMATION
  Report Type: Spontaneous
  Country: US (occurrence: US)
  Receive Date: 20140117
  Receipt Date: 20140117
  Transmission Date: 20141002
  Serious: No
  Sender: FDA-Public Use
  Company Number: US-GLAXOSMITHKLINE-A1045254A

PATIENT
  Age: 56 Year
  Sex: Female

DRUGS (1)
  1. PROMACTA [Suspect]
     Indication: IMMUNE THROMBOCYTOPENIC PURPURA

REACTIONS (5)
  - Platelet count abnormal [Unknown]
  - Drug ineffective [Unknown]
  - Hot flush [Unknown]
  - Blood glucose increased [Unknown]
  - Influenza [Recovered/Resolved]
